FAERS Safety Report 15555857 (Version 1)
Quarter: 2018Q4

REPORT INFORMATION
  Report Type: Spontaneous
  Country: US (occurrence: US)
  Receive Date: 20181023
  Receipt Date: 20181023
  Transmission Date: 20190205
  Serious: Yes (Hospitalization)
  Sender: FDA-Public Use
  Company Number: None

PATIENT
  Age: 85 Year
  Sex: Female
  Weight: 59.1 kg

DRUGS (15)
  1. APAP [Concomitant]
     Active Substance: ACETAMINOPHEN
  2. CARDIZEM [Concomitant]
     Active Substance: DILTIAZEM HYDROCHLORIDE
  3. EFFEXOR XR [Concomitant]
     Active Substance: VENLAFAXINE HYDROCHLORIDE
  4. LANTUS [Suspect]
     Active Substance: INSULIN GLARGINE
     Indication: DIABETES MELLITUS
     Dosage: ?          OTHER DOSE:18 UNITS;OTHER FREQUENCY:NIGHTLY;?
     Route: 058
  5. HUMALOG [Suspect]
     Active Substance: INSULIN LISPRO
     Indication: DIABETES MELLITUS
     Dosage: ?          OTHER DOSE:12 UNITS;OTHER FREQUENCY:TID W/MEALS;?
     Route: 058
  6. ALDACTONE [Concomitant]
     Active Substance: SPIRONOLACTONE
  7. WELCHOL [Concomitant]
     Active Substance: COLESEVELAM HYDROCHLORIDE
  8. VITD [Concomitant]
  9. LASIX [Concomitant]
     Active Substance: FUROSEMIDE
  10. XALATAN [Concomitant]
     Active Substance: LATANOPROST
  11. THERAGRAN [Concomitant]
     Active Substance: VITAMINS
  12. ASA [Concomitant]
     Active Substance: ASPIRIN
  13. LIPITOR [Concomitant]
     Active Substance: ATORVASTATIN CALCIUM
  14. NEURO [Concomitant]
  15. ELIQUIS [Concomitant]
     Active Substance: APIXABAN

REACTIONS (5)
  - Hypoglycaemia [None]
  - Product administration error [None]
  - Wrong technique in device usage process [None]
  - Therapy change [None]
  - Product dose omission [None]

NARRATIVE: CASE EVENT DATE: 20180702
